FAERS Safety Report 5210334-9 (Version None)
Quarter: 2007Q1

REPORT INFORMATION
  Report Type: 
  Country: None (occurrence: None)
  Receive Date: 20070117
  Receipt Date: 20070104
  Transmission Date: 20070707
  Serious: Yes (Hospitalization)
  Sender: FDA-Public Use
  Company Number: 2006CG01973

PATIENT
  Age: 77 Year
  Sex: Male

DRUGS (5)
  1. OMEPRAZOLE [Suspect]
     Route: 048
     Dates: start: 20060101, end: 20060101
  2. ATENOLOL [Concomitant]
  3. CORTISONE ACETATE [Concomitant]
     Dates: start: 20060101
  4. LOVENOX [Concomitant]
     Dates: start: 20060101
  5. HEMIGOXINE [Concomitant]

REACTIONS (1)
  - VASCULAR PURPURA [None]
